FAERS Safety Report 10400502 (Version 1)
Quarter: 2014Q3

REPORT INFORMATION
  Report Type: Spontaneous
  Country: US (occurrence: US)
  Receive Date: 20140821
  Receipt Date: 20140821
  Transmission Date: 20150326
  Serious: No
  Sender: FDA-Public Use
  Company Number: US-ASTRAZENECA-2013SE71829

PATIENT
  Sex: Male

DRUGS (2)
  1. CLARITAL [Concomitant]
     Indication: NASAL DECONGESTION THERAPY
  2. SYMBICORT [Suspect]
     Active Substance: BUDESONIDE\FORMOTEROL FUMARATE DIHYDRATE
     Dosage: UNKNOWN
     Route: 055

REACTIONS (6)
  - Chest pain [Unknown]
  - Seasonal allergy [Unknown]
  - Drug ineffective [Unknown]
  - Pulmonary congestion [Unknown]
  - Musculoskeletal chest pain [Unknown]
  - Pleurisy [Unknown]

NARRATIVE: CASE EVENT DATE: 2013
